FAERS Safety Report 23108400 (Version 1)
Quarter: 2023Q4

REPORT INFORMATION
  Report Type: Spontaneous
  Country: US (occurrence: US)
  Receive Date: 20231026
  Receipt Date: 20231026
  Transmission Date: 20240110
  Serious: Yes (Hospitalization)
  Sender: FDA-Public Use
  Company Number: US-AMGEN-USASP2023187816

PATIENT
  Age: 61 Year
  Sex: Female

DRUGS (3)
  1. RITUXIMAB [Suspect]
     Active Substance: RITUXIMAB
     Indication: Marginal zone lymphoma
     Dosage: UNK
     Route: 065
  2. OBINUTUZUMAB [Concomitant]
     Active Substance: OBINUTUZUMAB
     Indication: Marginal zone lymphoma
     Dosage: UNK
     Route: 065
  3. BENDAMUSTINE [Concomitant]
     Active Substance: BENDAMUSTINE
     Indication: Marginal zone lymphoma
     Dosage: UNK
     Route: 065

REACTIONS (10)
  - Apoptotic colonopathy [Not Recovered/Not Resolved]
  - Hypogammaglobulinaemia [Unknown]
  - Pancytopenia [Unknown]
  - Malnutrition [Unknown]
  - Dehydration [Unknown]
  - Gastritis [Unknown]
  - Gastrointestinal candidiasis [Unknown]
  - Encephalopathy [Unknown]
  - Electrolyte imbalance [Unknown]
  - Acute kidney injury [Unknown]
